FAERS Safety Report 8798485 (Version 1)
Quarter: 2012Q4

REPORT INFORMATION
  Report Type: 
  Country: US (occurrence: US)
  Receive Date: 20120920
  Receipt Date: 20120920
  Transmission Date: 20130627
  Serious: Yes (Hospitalization, Other)
  Sender: FDA-Public Use
  Company Number: US-AMGEN-USASP2012058408

PATIENT
  Age: 66 Year
  Sex: Female

DRUGS (1)
  1. ENBREL [Suspect]
     Indication: RHEUMATOID ARTHRITIS
     Dosage: 50 mg, qwk
     Route: 058
     Dates: start: 19990101

REACTIONS (11)
  - Cerebrovascular accident [Recovered/Resolved]
  - Colon cancer [Recovered/Resolved]
  - Fall [Recovered/Resolved]
  - Hip fracture [Recovered/Resolved]
  - Wrist fracture [Recovered/Resolved]
  - Haemorrhage [Recovered/Resolved]
  - Spinal fracture [Not Recovered/Not Resolved]
  - Jaundice [Recovered/Resolved]
  - Aphasia [Not Recovered/Not Resolved]
  - Anaemia [Recovered/Resolved]
  - Injection site bruising [Recovered/Resolved]
